FAERS Safety Report 21598154 (Version 1)
Quarter: 2022Q4

REPORT INFORMATION
  Report Type: Spontaneous
  Country: CN (occurrence: CN)
  Receive Date: 20221115
  Receipt Date: 20221115
  Transmission Date: 20230113
  Serious: Yes (Other)
  Sender: FDA-Public Use
  Company Number: CN-PFIZER INC-PV202200102379

PATIENT
  Age: 71 Year
  Sex: Male
  Weight: 60.7 kg

DRUGS (5)
  1. VFEND [Suspect]
     Active Substance: VORICONAZOLE
     Indication: Pneumonia
     Dosage: 0.2 G, 2X/DAY
     Route: 048
     Dates: start: 20221018, end: 20221101
  2. VFEND [Suspect]
     Active Substance: VORICONAZOLE
     Indication: Anti-infective therapy
  3. ISONIAZID [Suspect]
     Active Substance: ISONIAZID
     Indication: Pneumonia
     Dosage: 0.3 G, 1X/DAY
     Route: 048
     Dates: start: 20221018, end: 20221102
  4. SULFAMETHOXAZOLE [Suspect]
     Active Substance: SULFAMETHOXAZOLE
     Indication: Pneumonia
     Dosage: 0.48 G, 2X/DAY
     Route: 048
     Dates: start: 20221021, end: 20221029
  5. MEROPENEM [Suspect]
     Active Substance: MEROPENEM
     Indication: Pneumonia
     Dosage: 0.5 G, 2X/DAY
     Route: 041
     Dates: start: 20221022, end: 20221101

REACTIONS (1)
  - Hepatic function abnormal [Recovering/Resolving]

NARRATIVE: CASE EVENT DATE: 20221101
